FAERS Safety Report 4483288-0 (Version None)
Quarter: 2004Q3

REPORT INFORMATION
  Report Type: 
  Country: None (occurrence: None)
  Receive Date: 20040921
  Receipt Date: 20040602
  Transmission Date: 20050211
  Serious: Yes (Hospitalization)
  Sender: FDA-Public Use
  Company Number: 163-20785-04060081 (0)

PATIENT
  Age: 57 Year
  Sex: Male

DRUGS (6)
  1. THALOMID [Suspect]
     Indication: GLIOBLASTOMA MULTIFORME
     Dosage: 150 MG, QHS, ORAL
     Route: 048
     Dates: start: 20040320, end: 20040523
  2. CYCLOPHOSPHAMIDE [Suspect]
     Indication: GLIOBLASTOMA MULTIFORME
     Dosage: 100 MG, DAILY X 21 DAYS, ORAL
     Route: 048
     Dates: start: 20040410, end: 20040524
  3. ETOPOSIDE [Suspect]
     Indication: GLIOBLASTOMA MULTIFORME
     Dosage: 50 MG, DAILY X 21 DAYS, ORAL
     Route: 048
     Dates: start: 20040320, end: 20040521
  4. CELEBREX [Suspect]
     Indication: GLIOBLASTOMA MULTIFORME
     Dosage: 400 MG, BID, ORAL
     Route: 048
     Dates: start: 20040320, end: 20040524
  5. ZOLOFT [Concomitant]
  6. PREDNISONE [Concomitant]

REACTIONS (1)
  - PULMONARY EMBOLISM [None]
